FAERS Safety Report 23936660 (Version 1)
Quarter: 2024Q2

REPORT INFORMATION
  Report Type: Spontaneous
  Country: AU (occurrence: AU)
  Receive Date: 20240604
  Receipt Date: 20240604
  Transmission Date: 20240716
  Serious: Yes (Life-Threatening, Hospitalization)
  Sender: FDA-Public Use
  Company Number: None

PATIENT
  Age: 56 Year
  Sex: Female

DRUGS (2)
  1. LURASIDONE HYDROCHLORIDE [Suspect]
     Active Substance: LURASIDONE HYDROCHLORIDE
     Indication: Product used for unknown indication
     Dosage: UNK
     Route: 065
     Dates: end: 20230410
  2. OLANZAPINE [Suspect]
     Active Substance: OLANZAPINE
     Indication: Agitated depression
     Dosage: UNK
     Route: 065
     Dates: start: 20230401

REACTIONS (4)
  - Fear [Not Recovered/Not Resolved]
  - Restlessness [Not Recovered/Not Resolved]
  - Dystonia [Not Recovered/Not Resolved]
  - Akathisia [Unknown]

NARRATIVE: CASE EVENT DATE: 20230401
